FAERS Safety Report 8484320-X (Version None)
Quarter: 2012Q3

REPORT INFORMATION
  Report Type: 
  Country: None (occurrence: None)
  Receive Date: 20120703
  Receipt Date: 20120625
  Transmission Date: 20120928
  Serious: Yes (Death, Hospitalization, Other)
  Sender: FDA-Public Use
  Company Number: PHHY2012BE044464

PATIENT
  Sex: Male

DRUGS (2)
  1. SANDOSTATIN LAR [Suspect]
     Dosage: 20 MG, EVERY 2 WEEKS
     Route: 030
     Dates: end: 20120501
  2. SANDOSTATIN LAR [Suspect]
     Indication: PANCREATITIS CHRONIC
     Dosage: 20 MG, QMO
     Route: 030
     Dates: start: 20110908

REACTIONS (4)
  - PANCREATITIS [None]
  - AORTIC VALVE STENOSIS [None]
  - CARDIAC ARREST [None]
  - INFECTED CYST [None]
